FAERS Safety Report 18680933 (Version 1)
Quarter: 2020Q4

REPORT INFORMATION
  Report Type: Spontaneous
  Country: US (occurrence: US)
  Receive Date: 20201230
  Receipt Date: 20201230
  Transmission Date: 20210114
  Serious: No
  Sender: FDA-Public Use
  Company Number: US-B.I. PHARMACEUTICALS,INC./RIDGEFIELD-2020-BI-073079

PATIENT
  Age: 52 Year
  Sex: Male

DRUGS (1)
  1. JARDIANCE [Suspect]
     Active Substance: EMPAGLIFLOZIN
     Indication: GLYCOSYLATED HAEMOGLOBIN DECREASED
     Dosage: 25 MG ONCE DAILY
     Dates: start: 201909, end: 201909

REACTIONS (3)
  - Pyrexia [Recovered/Resolved]
  - Blister [Recovered/Resolved]
  - Penile blister [Recovered/Resolved]

NARRATIVE: CASE EVENT DATE: 201909
